FAERS Safety Report 7714780-0 (Version None)
Quarter: 2011Q3

REPORT INFORMATION
  Report Type: 
  Country: None (occurrence: None)
  Receive Date: 20110822
  Receipt Date: 20110804
  Transmission Date: 20111222
  Serious: Yes (Death, Other)
  Sender: FDA-Public Use
  Company Number: 2011MA011472

PATIENT
  Age: 37 Year

DRUGS (4)
  1. DIAZEPAM [Suspect]
  2. AMITRIPTYLINE HCL [Suspect]
  3. METHADONE HCL [Suspect]
     Dosage: 1.5 MG/L
  4. PHENYTOIN [Suspect]

REACTIONS (8)
  - RESPIRATORY DEPRESSION [None]
  - PULMONARY CONGESTION [None]
  - PYELONEPHRITIS CHRONIC [None]
  - TOXICITY TO VARIOUS AGENTS [None]
  - HAEMORRHAGE SUBCUTANEOUS [None]
  - OVERDOSE [None]
  - VOMITING [None]
  - PULMONARY OEDEMA [None]
